FAERS Safety Report 6042898-X (Version None)
Quarter: 2009Q1

REPORT INFORMATION
  Report Type: 
  Country: None (occurrence: None)
  Receive Date: 20090119
  Receipt Date: 20090113
  Transmission Date: 20090719
  Serious: Yes (Life-Threatening, Disabling, Other)
  Sender: FDA-Public Use
  Company Number: A0763232A

PATIENT
  Sex: Male

DRUGS (10)
  1. LAMICTAL [Suspect]
     Indication: EPILEPSY
     Route: 048
     Dates: start: 20070501
  2. UNSPECIFIED MEDICATION [Suspect]
  3. KEPPRA [Concomitant]
  4. CYCLOSPORINE [Concomitant]
  5. CELLCEPT [Concomitant]
  6. TRIMETHOPRIM [Concomitant]
  7. ACTOS [Concomitant]
  8. NEXIUM [Concomitant]
  9. VYTORIN [Concomitant]
  10. DIOVAN [Concomitant]

REACTIONS (4)
  - CONVULSION [None]
  - DRUG INTERACTION [None]
  - DRUG LEVEL DECREASED [None]
  - OVERDOSE [None]
